FAERS Safety Report 5707814-6 (Version None)
Quarter: 2008Q2

REPORT INFORMATION
  Report Type: 
  Country: None (occurrence: None)
  Receive Date: 20080417
  Receipt Date: 20080414
  Transmission Date: 20081010
  Serious: Yes (Life-Threatening, Hospitalization, Other)
  Sender: FDA-Public Use
  Company Number: US-BAYER-200819396NA

PATIENT
  Age: 70 Year
  Sex: Female
  Weight: 82 kg

DRUGS (2)
  1. MAGNEVIST [Suspect]
     Indication: ANGIOGRAM
     Dosage: AS USED: 60 ML  UNIT DOSE: 15 ML
     Route: 042
     Dates: start: 20080408, end: 20080408
  2. METFORMIN HCL [Concomitant]

REACTIONS (8)
  - ASTHENIA [None]
  - CONTRAST MEDIA REACTION [None]
  - LUNG DISORDER [None]
  - NAUSEA [None]
  - OXYGEN SATURATION DECREASED [None]
  - PALLOR [None]
  - PULMONARY OEDEMA [None]
  - VOMITING [None]
